FAERS Safety Report 4467057-3 (Version None)
Quarter: 2004Q4

REPORT INFORMATION
  Report Type: 
  Country: None (occurrence: None)
  Receive Date: 20041001
  Receipt Date: 20041001
  Transmission Date: 20050328
  Serious: Yes (Hospitalization)
  Sender: FDA-Public Use
  Company Number: None

PATIENT
  Age: 31 Year
  Sex: Female
  Weight: 53.5244 kg

DRUGS (3)
  1. TEMOZOLONIDE 200 MG /M2 (PILLS) [Suspect]
     Indication: ASTROCYTOMA
     Dosage: DAYS 1-5 Q 28 DAYS FOR 12 CYCLES
     Dates: start: 20040817
  2. TEMOZOLONIDE 200 MG /M2 (PILLS) [Suspect]
     Indication: ASTROCYTOMA
     Dosage: DAYS 1-5 Q 28 DAYS FOR 12 CYCLES
     Dates: start: 20040914
  3. NEURONTIN [Concomitant]

REACTIONS (3)
  - CHEST DISCOMFORT [None]
  - CHEST PAIN [None]
  - COSTOCHONDRITIS [None]
